FAERS Safety Report 11692371 (Version 8)
Quarter: 2018Q2

REPORT INFORMATION
  Report Type: Spontaneous
  Country: US (occurrence: US)
  Receive Date: 20151103
  Receipt Date: 20180615
  Transmission Date: 20180711
  Serious: Yes (Hospitalization)
  Sender: FDA-Public Use
  Company Number: US-ASTRAZENECA-2015SF04991

PATIENT
  Age: 1188 Month
  Sex: Female
  Weight: 39.9 kg

DRUGS (3)
  1. SYMBICORT [Suspect]
     Active Substance: BUDESONIDE\FORMOTEROL FUMARATE DIHYDRATE
     Indication: CHRONIC OBSTRUCTIVE PULMONARY DISEASE
     Dosage: 160-4.5 MCG, 2 PUFFS, TWO TIMES A DAY
     Route: 055
  2. EYE DROPS [Concomitant]
     Active Substance: UNSPECIFIED INGREDIENT
     Indication: PROPHYLAXIS
  3. TUDORZA PRESSAIR [Suspect]
     Active Substance: ACLIDINIUM BROMIDE
     Indication: CHRONIC OBSTRUCTIVE PULMONARY DISEASE
     Dosage: 400 MCG 1 PUFF EVERY 12 HOURS
     Route: 055
     Dates: start: 201510

REACTIONS (14)
  - Constipation [Unknown]
  - Respiratory tract infection [Unknown]
  - Arterial stenosis [Unknown]
  - Wrong technique in product usage process [Unknown]
  - Acute pulmonary oedema [Unknown]
  - Cardiac valve disease [Recovered/Resolved]
  - Fluid retention [Unknown]
  - Intentional device misuse [Unknown]
  - Cardiac dysfunction [Unknown]
  - Fatigue [Unknown]
  - Drug dose omission [Unknown]
  - Device malfunction [Unknown]
  - Intentional product misuse [Unknown]
  - Device failure [Unknown]

NARRATIVE: CASE EVENT DATE: 201510
